FAERS Safety Report 11372234 (Version 1)
Quarter: 2015Q3

REPORT INFORMATION
  Report Type: Spontaneous
  Country: US (occurrence: US)
  Receive Date: 20150811
  Receipt Date: 20150811
  Transmission Date: 20151125
  Serious: No
  Sender: FDA-Public Use
  Company Number: US-ELI_LILLY_AND_COMPANY-US201310001983

PATIENT
  Sex: Male

DRUGS (3)
  1. TESTIM [Concomitant]
     Active Substance: TESTOSTERONE
     Indication: BLOOD TESTOSTERONE DECREASED
     Dosage: UNK, OTHER
     Route: 065
  2. AXIRON [Suspect]
     Active Substance: TESTOSTERONE
     Dosage: 60 MG, OTHER
     Route: 062
     Dates: start: 201210, end: 20131004
  3. AXIRON [Suspect]
     Active Substance: TESTOSTERONE
     Dosage: 60 MG, OTHER
     Route: 062
     Dates: start: 201210, end: 20131004

REACTIONS (5)
  - Incorrect dose administered [Unknown]
  - Drug administered at inappropriate site [Unknown]
  - Inappropriate schedule of drug administration [Unknown]
  - Incorrect product storage [Unknown]
  - Feeling abnormal [Unknown]

NARRATIVE: CASE EVENT DATE: 201210
